FAERS Safety Report 4848462-X (Version None)
Quarter: 2005Q4

REPORT INFORMATION
  Report Type: 
  Country: None (occurrence: None)
  Receive Date: 20051208
  Receipt Date: 20050908
  Transmission Date: 20060501
  Serious: Yes (Hospitalization)
  Sender: FDA-Public Use
  Company Number: US-MERCK-0509USA01216

PATIENT
  Age: 58 Year
  Sex: Female
  Weight: 130 kg

DRUGS (14)
  1. VIOXX [Suspect]
     Indication: ARTHRALGIA
     Route: 048
     Dates: start: 19991122, end: 20041001
  2. VASERETIC [Concomitant]
     Indication: HYPERTENSION
     Route: 065
     Dates: start: 19970601, end: 20020201
  3. NADOLOL [Concomitant]
     Indication: HYPERTENSION
     Route: 065
     Dates: start: 19970601, end: 20050301
  4. NADOLOL [Concomitant]
     Indication: CARDIAC DISORDER
     Route: 065
     Dates: start: 19970601, end: 20050301
  5. RABEPRAZOLE SODIUM [Concomitant]
     Indication: GASTRIC DISORDER
     Route: 065
     Dates: start: 19950101
  6. NEURONTIN [Concomitant]
     Indication: PAIN
     Route: 065
     Dates: start: 19990101, end: 20020301
  7. CYCLOBENZAPRINE HYDROCHLORIDE [Concomitant]
     Indication: PAIN
     Route: 065
     Dates: start: 19950101
  8. FOLIC ACID [Concomitant]
     Indication: ARTHRITIS
     Route: 065
     Dates: start: 19970601
  9. CORGARD [Concomitant]
     Indication: HYPERTENSION
     Route: 065
     Dates: start: 19900101
  10. CORGARD [Concomitant]
     Indication: CARDIAC DISORDER
     Route: 065
     Dates: start: 19900101
  11. FUROSEMIDE [Concomitant]
     Route: 065
     Dates: start: 20000101, end: 20020501
  12. PAXIL [Concomitant]
     Route: 065
  13. BUSPAR [Concomitant]
     Route: 065
  14. DOXEPIN HYDROCHLORIDE [Concomitant]
     Route: 065

REACTIONS (11)
  - ANIMAL BITE [None]
  - CARDIAC DISORDER [None]
  - DIABETES MELLITUS [None]
  - DYSPNOEA [None]
  - FIBROMYALGIA [None]
  - GALLBLADDER DISORDER [None]
  - GASTRIC HAEMORRHAGE [None]
  - GLAUCOMA [None]
  - IRRITABLE BOWEL SYNDROME [None]
  - NAUSEA [None]
  - PULMONARY EMBOLISM [None]
